FAERS Safety Report 23143722 (Version 1)
Quarter: 2023Q4

REPORT INFORMATION
  Report Type: Spontaneous
  Country: US (occurrence: US)
  Receive Date: 20231103
  Receipt Date: 20231103
  Transmission Date: 20240110
  Serious: No
  Sender: FDA-Public Use
  Company Number: US-MYOVANT SCIENCES GMBH-2023MYSCI0700216

PATIENT
  Sex: Male

DRUGS (4)
  1. ORGOVYX [Suspect]
     Active Substance: RELUGOLIX
     Indication: Prostate cancer
     Dosage: 120 MILLIGRAM, QD
     Route: 048
     Dates: start: 20220606
  2. TERBINAFINE                        /00992602/ [Concomitant]
     Indication: Onychomycosis
     Dosage: 250 MILLIGRAM, QD
     Route: 048
     Dates: start: 202305
  3. LEVOTHYROXINE [Concomitant]
     Active Substance: LEVOTHYROXINE
     Indication: Thyroid disorder
     Dosage: 88 MILLIGRAM, QD
     Route: 048
     Dates: start: 202305
  4. PREDNISONE [Concomitant]
     Active Substance: PREDNISONE
     Indication: Chemotherapy side effect prophylaxis
     Dosage: 10 MILLIGRAM, QD, SINCE 18-20 WEEKS AGO
     Route: 048

REACTIONS (1)
  - Therapy interrupted [Not Recovered/Not Resolved]
